FAERS Safety Report 4323461-5 (Version None)
Quarter: 2004Q1

REPORT INFORMATION
  Report Type: 
  Country: None (occurrence: None)
  Receive Date: 20040324
  Receipt Date: 20040324
  Transmission Date: 20041129
  Serious: Yes (Other)
  Sender: FDA-Public Use
  Company Number: None

PATIENT
  Age: 48 Year
  Sex: Female
  Weight: 90.7194 kg

DRUGS (9)
  1. PROZAC [Suspect]
     Indication: DEPRESSION
     Dates: start: 20030228, end: 20030308
  2. PROZAC [Suspect]
     Indication: OBSESSIVE-COMPULSIVE DISORDER
     Dates: start: 20030228, end: 20030308
  3. PROZAC [Suspect]
     Indication: DEPRESSION
     Dates: start: 20030308, end: 20030308
  4. PROZAC [Suspect]
     Indication: OBSESSIVE-COMPULSIVE DISORDER
     Dates: start: 20030308, end: 20030308
  5. ACIPHEX [Concomitant]
  6. TAMOXIFEN CITRATE [Concomitant]
  7. XANAX [Concomitant]
  8. TYLENOL W/ CODEINE NO. 3 [Concomitant]
  9. IMITREX [Concomitant]

REACTIONS (1)
  - SUICIDAL IDEATION [None]
